FAERS Safety Report 7468687-7 (Version None)
Quarter: 2011Q2

REPORT INFORMATION
  Report Type: 
  Country: None (occurrence: None)
  Receive Date: 20110510
  Receipt Date: 20110428
  Transmission Date: 20111010
  Serious: No
  Sender: FDA-Public Use
  Company Number: US-BIOGENIDEC-2010BI024432

PATIENT
  Age: 62 Year
  Sex: Female

DRUGS (1)
  1. TYSABRI [Suspect]
     Indication: MULTIPLE SCLEROSIS
     Route: 042
     Dates: start: 20091118

REACTIONS (15)
  - FUNGAL SKIN INFECTION [None]
  - FATIGUE [None]
  - URINARY TRACT INFECTION [None]
  - NEPHROLITHIASIS [None]
  - BALANCE DISORDER [None]
  - PHARYNGEAL DISORDER [None]
  - VASCULAR ACCESS COMPLICATION [None]
  - POOR VENOUS ACCESS [None]
  - OROPHARYNGEAL PAIN [None]
  - MALAISE [None]
  - DYSPNOEA [None]
  - OTITIS MEDIA [None]
  - LYMPHOCYTE COUNT INCREASED [None]
  - WHITE BLOOD CELL COUNT ABNORMAL [None]
  - PYREXIA [None]
